FAERS Safety Report 5256658-0 (Version None)
Quarter: 2007Q1

REPORT INFORMATION
  Report Type: 
  Country: None (occurrence: None)
  Receive Date: 20070306
  Receipt Date: 20070227
  Transmission Date: 20070707
  Serious: Yes (Hospitalization)
  Sender: FDA-Public Use
  Company Number: DE-ELI_LILLY_AND_COMPANY-DE200702005575

PATIENT
  Age: 62 Year
  Sex: Male

DRUGS (2)
  1. GEMZAR [Suspect]
     Indication: LUNG NEOPLASM MALIGNANT
     Dosage: 1000 MG/M2, UNK
     Route: 042
  2. CISPLATIN [Concomitant]
     Indication: LUNG NEOPLASM MALIGNANT
     Dosage: 80 MG/M2, UNK

REACTIONS (1)
  - PERIPHERAL EMBOLISM [None]
